FAERS Safety Report 7244534-3 (Version None)
Quarter: 2011Q1

REPORT INFORMATION
  Report Type: 
  Country: None (occurrence: None)
  Receive Date: 20110125
  Receipt Date: 20110118
  Transmission Date: 20110831
  Serious: Yes (Death, Life-Threatening, Hospitalization)
  Sender: FDA-Public Use
  Company Number: US-ASTRAZENECA-2010SE60180

PATIENT
  Age: 788 Month
  Sex: Male
  Weight: 63.5 kg

DRUGS (10)
  1. MEGACE [Concomitant]
  2. DOCETAXEL [Suspect]
     Indication: HEAD AND NECK CANCER
     Route: 042
     Dates: start: 20070502, end: 20070615
  3. ZOFRAN [Concomitant]
  4. ZD1839 [Suspect]
     Indication: HEAD AND NECK CANCER
     Dosage: DAILY
     Route: 048
     Dates: start: 20070502, end: 20070615
  5. AMBIEN [Concomitant]
  6. ATIVAN [Concomitant]
  7. FLOMAX [Concomitant]
  8. REMERON [Concomitant]
  9. ZYPREXA [Concomitant]
  10. SYNTHROID [Concomitant]

REACTIONS (9)
  - ACUTE RESPIRATORY DISTRESS SYNDROME [None]
  - FATIGUE [None]
  - PULMONARY ALVEOLAR HAEMORRHAGE [None]
  - CEREBRAL ISCHAEMIA [None]
  - DIARRHOEA [None]
  - DEHYDRATION [None]
  - RESPIRATORY FAILURE [None]
  - LUNG INFECTION PSEUDOMONAL [None]
  - PNEUMONITIS [None]
